FAERS Safety Report 5521768-7 (Version None)
Quarter: 2007Q4

REPORT INFORMATION
  Report Type: 
  Country: None (occurrence: None)
  Receive Date: 20071120
  Receipt Date: 20071112
  Transmission Date: 20080405
  Serious: Yes (Other)
  Sender: FDA-Public Use
  Company Number: PHBS2007JP16609

PATIENT
  Age: 58 Year
  Sex: Female
  Weight: 45 kg

DRUGS (7)
  1. GLEEVEC [Suspect]
     Indication: GASTROINTESTINAL STROMAL TUMOUR
     Dosage: 100 MG/DAY
     Route: 048
     Dates: start: 20071004, end: 20071005
  2. GLEEVEC [Suspect]
     Dosage: 200 MG/DAY
     Route: 048
     Dates: start: 20071006, end: 20071015
  3. GLEEVEC [Suspect]
     Dosage: 300 MG/DAY
     Route: 048
     Dates: start: 20071016
  4. GLEEVEC [Suspect]
     Dosage: 400 MG/D
     Route: 048
     Dates: start: 20070907, end: 20070921
  5. ACINON [Concomitant]
     Indication: ABDOMINAL PAIN UPPER
     Dosage: 300 MG/DAY
     Route: 048
     Dates: start: 20070912
  6. PRIMPERAN INJ [Concomitant]
     Indication: NAUSEA
     Dosage: 10 MG/DAY
     Route: 048
     Dates: start: 20070912
  7. MYSLEE [Concomitant]
     Indication: INSOMNIA
     Dosage: 5 MG/DAY
     Route: 048
     Dates: start: 20070905

REACTIONS (8)
  - ALANINE AMINOTRANSFERASE INCREASED [None]
  - ASPARTATE AMINOTRANSFERASE INCREASED [None]
  - BLOOD ALKALINE PHOSPHATASE INCREASED [None]
  - BLOOD LACTATE DEHYDROGENASE INCREASED [None]
  - GAMMA-GLUTAMYLTRANSFERASE INCREASED [None]
  - HEPATIC FUNCTION ABNORMAL [None]
  - LEUKOPENIA [None]
  - RASH GENERALISED [None]
